FAERS Safety Report 5135700-1 (Version None)
Quarter: 2006Q4

REPORT INFORMATION
  Report Type: 
  Country: None (occurrence: None)
  Receive Date: 20061026
  Receipt Date: 19991101
  Transmission Date: 20070319
  Serious: Yes (Hospitalization)
  Sender: FDA-Public Use
  Company Number: AUS/99/01479/LEX

PATIENT
  Age: 21 Year
  Sex: Male

DRUGS (5)
  1. CLOZARIL [Suspect]
     Dosage: 0 - 200MG DAILY
     Route: 048
     Dates: start: 19980209, end: 19980226
  2. CLOZARIL [Suspect]
     Dosage: 0 - 600MG DAILY
     Dates: start: 19980307, end: 19991110
  3. ORPHENADRINE CITRATE [Concomitant]
     Route: 065
  4. PROPRANOLOL [Concomitant]
     Route: 065
  5. VALPROATE SODIUM [Concomitant]
     Route: 065

REACTIONS (4)
  - BUNDLE BRANCH BLOCK RIGHT [None]
  - ELECTROCARDIOGRAM ABNORMAL [None]
  - NEUTROPENIA [None]
  - TACHYCARDIA [None]
